FAERS Safety Report 9351832 (Version 2)
Quarter: 2014Q3

REPORT INFORMATION
  Report Type: Spontaneous
  Country: US (occurrence: US)
  Receive Date: 20130617
  Receipt Date: 20140818
  Transmission Date: 20150326
  Serious: Yes (Hospitalization, Other)
  Sender: FDA-Public Use
  Company Number: US-009507513-1306USA005974

PATIENT
  Sex: Female
  Weight: 77.55 kg

DRUGS (1)
  1. NUVARING [Suspect]
     Active Substance: ETHINYL ESTRADIOL\ETONOGESTREL
     Indication: CONTRACEPTION
     Dosage: UNK
     Route: 067
     Dates: start: 200807, end: 20100623

REACTIONS (10)
  - Balance disorder [Unknown]
  - Methylenetetrahydrofolate reductase gene mutation [Unknown]
  - Cholecystectomy [Unknown]
  - International normalised ratio increased [Unknown]
  - Vision blurred [Recovered/Resolved]
  - Intracranial venous sinus thrombosis [Unknown]
  - Factor V Leiden mutation [Unknown]
  - Protein C deficiency [Unknown]
  - Dizziness [Unknown]
  - Embolism venous [Unknown]

NARRATIVE: CASE EVENT DATE: 200910
